FAERS Safety Report 8913978 (Version 1)
Quarter: 2012Q4

REPORT INFORMATION
  Report Type: 
  Country: FR (occurrence: FR)
  Receive Date: 20121119
  Receipt Date: 20121119
  Transmission Date: 20130627
  Serious: Yes (Hospitalization)
  Sender: FDA-Public Use
  Company Number: FR-GE HEALTHCARE MEDICAL DIAGNOSTICS-VISP-NO-1211S-0528

PATIENT
  Age: 73 Year
  Sex: Male

DRUGS (9)
  1. VISIPAQUE [Suspect]
     Indication: PRODUCT USED FOR UNKNOWN INDICATION
     Dosage: dose not reported
     Route: 050
     Dates: start: 20120314, end: 20120314
  2. ISOBAR [Suspect]
  3. INEGY [Suspect]
  4. ALLOPURINOL [Concomitant]
  5. HYDROCORTISONE [Concomitant]
  6. PRAXILENE [Concomitant]
  7. LEVOTHYROX [Concomitant]
  8. STAGID [Concomitant]
  9. ASPEGIC [Concomitant]

REACTIONS (4)
  - Rhabdomyolysis [Recovered/Resolved]
  - Renal failure acute [Recovered/Resolved]
  - Cough [Recovered/Resolved]
  - Hypotension [None]
